FAERS Safety Report 10378443 (Version 1)
Quarter: 2014Q1

REPORT INFORMATION
  Report Type: Spontaneous
  Country: US (occurrence: None)
  Receive Date: 20140306
  Receipt Date: 20140306
  Transmission Date: 20141002
  Serious: Yes (Hospitalization, Disabling, Other)
  Sender: FDA-Public Use
  Company Number: 163-21880-13023168

PATIENT
  Age: 72 Year
  Sex: Male

DRUGS (3)
  1. REVLIMID (LENALIDOMIDE) (25 MILLIGRAM, CAPSULES) [Suspect]
     Indication: PLASMA CELL MYELOMA
     Route: 048
     Dates: start: 201007, end: 2010
  2. VELCADE (BORTEZOMIB) (INJECTION) [Suspect]
     Indication: PLATELET COUNT DECREASED
     Dosage: 2 MG, 1 IN 1 WK, IV
     Route: 042
     Dates: start: 20130123, end: 20130213
  3. DEXAMETHASONE (DEXAMETHASONE) (UNKNOWN) [Concomitant]

REACTIONS (2)
  - Platelet count decreased [None]
  - Hypotension [None]
